FAERS Safety Report 10648399 (Version 4)
Quarter: 2015Q1

REPORT INFORMATION
  Report Type: Spontaneous
  Country: US (occurrence: US)
  Receive Date: 20141212
  Receipt Date: 20150304
  Transmission Date: 20150720
  Serious: Yes (Hospitalization)
  Sender: FDA-Public Use
  Company Number: US-JNJFOC-20141206675

PATIENT
  Age: 66 Year
  Sex: Male

DRUGS (18)
  1. BENZONATATE. [Concomitant]
     Active Substance: BENZONATATE
  2. CEFTIN [Concomitant]
     Active Substance: CEFUROXIME AXETIL
  3. NEURONTIN [Concomitant]
     Active Substance: GABAPENTIN
  4. SPIRIVA [Concomitant]
     Active Substance: TIOTROPIUM BROMIDE MONOHYDRATE
     Indication: CHRONIC OBSTRUCTIVE PULMONARY DISEASE
  5. VENTOLIN [Concomitant]
     Active Substance: ALBUTEROL SULFATE
  6. IMBRUVICA [Suspect]
     Active Substance: IBRUTINIB
     Indication: B-CELL LYMPHOMA
     Route: 048
  7. IMBRUVICA [Suspect]
     Active Substance: IBRUTINIB
     Indication: B-CELL LYMPHOMA
     Route: 048
     Dates: start: 20141119
  8. DIAZEPAM. [Concomitant]
     Active Substance: DIAZEPAM
  9. DIVALPROEX [Concomitant]
     Active Substance: DIVALPROEX SODIUM
  10. PROTONIX [Concomitant]
     Active Substance: PANTOPRAZOLE SODIUM
  11. XANAX [Concomitant]
     Active Substance: ALPRAZOLAM
  12. ADVAIR HFA [Concomitant]
     Active Substance: FLUTICASONE PROPIONATE\SALMETEROL XINAFOATE
     Indication: CHRONIC OBSTRUCTIVE PULMONARY DISEASE
  13. OXYCODONE [Concomitant]
     Active Substance: OXYCODONE
  14. TEMAZEPAM. [Concomitant]
     Active Substance: TEMAZEPAM
  15. TRIAMCINOLONE [Concomitant]
     Active Substance: TRIAMCINOLONE
  16. PREDNISONE. [Concomitant]
     Active Substance: PREDNISONE
  17. LASIX [Concomitant]
     Active Substance: FUROSEMIDE
  18. RIZATRIPTAN BENZOATE. [Concomitant]
     Active Substance: RIZATRIPTAN BENZOATE

REACTIONS (5)
  - Decreased appetite [Unknown]
  - Pleural effusion [Unknown]
  - Pneumonia [Unknown]
  - Chronic obstructive pulmonary disease [Recovering/Resolving]
  - Pain in extremity [Unknown]

NARRATIVE: CASE EVENT DATE: 2014
